FAERS Safety Report 4280568-9 (Version None)
Quarter: 2004Q1

REPORT INFORMATION
  Report Type: 
  Country: None (occurrence: None)
  Receive Date: 20040127
  Receipt Date: 20040109
  Transmission Date: 20041129
  Serious: Yes (Death, Life-Threatening, Other)
  Sender: FDA-Public Use
  Company Number: RENA-10708

PATIENT
  Age: 59 Year
  Sex: Male
  Weight: 62 kg

DRUGS (12)
  1. RENAGEL [Suspect]
     Indication: HYPERPHOSPHATAEMIA
     Dosage: 3 G OD PO
     Route: 048
     Dates: start: 20030723, end: 20031030
  2. LOSARTAN POTASSIUM [Concomitant]
  3. DOXAXOSIN MESILATE [Concomitant]
  4. FELODIPINE [Concomitant]
  5. ISOSORBIDE DINITRATE [Concomitant]
  6. CALCIUM POLYSTYRENE [Concomitant]
  7. IMIDAPRIL HYDROCHLORIDE [Concomitant]
  8. ALLOPURINOL [Concomitant]
  9. PANTETHINE [Concomitant]
  10. MAGNESIUM OXIDE [Concomitant]
  11. LEVOFLOXACIN [Concomitant]
  12. LOXOPROFEN SODIUM [Concomitant]

REACTIONS (9)
  - ANAEMIA [None]
  - BACTERAEMIA [None]
  - BLOOD PRESSURE DECREASED [None]
  - DIVERTICULUM INTESTINAL [None]
  - ENTEROVESICAL FISTULA [None]
  - LOSS OF CONSCIOUSNESS [None]
  - OSTEOMYELITIS [None]
  - UPPER GASTROINTESTINAL HAEMORRHAGE [None]
  - URETHRITIS [None]
